FAERS Safety Report 7002483-X (Version None)
Quarter: 2010Q3

REPORT INFORMATION
  Report Type: 
  Country: None (occurrence: None)
  Receive Date: 20100920
  Receipt Date: 20100301
  Transmission Date: 20110219
  Serious: Yes (Other)
  Sender: FDA-Public Use
  Company Number: US-ASTRAZENECA-2009UW20962

PATIENT
  Sex: Female

DRUGS (9)
  1. SEROQUEL [Suspect]
     Indication: AFFECTIVE DISORDER
     Route: 048
     Dates: start: 20060504
  2. SEROQUEL [Suspect]
     Dosage: 300 MG TWO TABLETS DAILY
     Route: 048
     Dates: start: 20060812
  3. NEURONTIN [Concomitant]
     Indication: PAIN
     Dosage: 300 MG - 1800 MG
     Dates: start: 20060504
  4. KLONOPIN EQ [Concomitant]
     Indication: ANXIETY
     Route: 048
     Dates: start: 20060504
  5. PROZAC [Concomitant]
     Indication: AFFECTIVE DISORDER
     Dosage: 20 MG THREE CAPSULES AT MORNING
     Dates: start: 20060504
  6. VICODIN [Concomitant]
     Dosage: 5/500 Q 12 HRS PRN
     Dates: start: 20060504
  7. DEPAKOTE [Concomitant]
     Indication: AFFECTIVE DISORDER
     Dosage: 250 MG- 1250 MG
     Dates: start: 20060504
  8. DEPAKOTE [Concomitant]
     Indication: CONVULSION
     Dosage: 250 MG- 1250 MG
     Dates: start: 20060504
  9. MIDRIN [Concomitant]
     Indication: HEADACHE
     Dosage: 2 TABLETS AT ONSET OF HEADACHE AND THEN 2 TABS AS REQUIRED
     Dates: start: 20060504

REACTIONS (3)
  - DIABETES MELLITUS [None]
  - KETOACIDOSIS [None]
  - PANCREATITIS [None]
